APPROVED DRUG PRODUCT: VIZZ
Active Ingredient: ACECLIDINE HYDROCHLORIDE
Strength: EQ 1.44% BASE
Dosage Form/Route: SOLUTION/DROPS;OPHTHALMIC
Application: N218585 | Product #001
Applicant: LENZ THERAPEUTICS INC
Approved: Jul 31, 2025 | RLD: Yes | RS: Yes | Type: RX

PATENTS:
Patent 10052313 | Expires: Mar 24, 2034
Patent 9844537 | Expires: Mar 24, 2034
Patent 12128036 | Expires: Oct 8, 2039
Patent 11179328 | Expires: Mar 24, 2034
Patent 12414942 | Expires: Mar 15, 2044

EXCLUSIVITY:
Code: NCE | Date: Jul 31, 2030